FAERS Safety Report 5822889-1 (Version None)
Quarter: 2008Q3

REPORT INFORMATION
  Report Type: 
  Country: None (occurrence: None)
  Receive Date: 20080724
  Receipt Date: 20080724
  Transmission Date: 20090109
  Serious: No
  Sender: FDA-Public Use
  Company Number: None

PATIENT
  Sex: Female
  Weight: 104.3273 kg

DRUGS (1)
  1. OXYCONTIN [Suspect]
     Indication: PAIN
     Dosage: 20MG 2X SWALLOW

REACTIONS (3)
  - ABNORMAL DREAMS [None]
  - MIDDLE INSOMNIA [None]
  - SLEEP DISORDER [None]
